FAERS Safety Report 19019584 (Version 1)
Quarter: 2021Q1

REPORT INFORMATION
  Report Type: Spontaneous
  Country: CN (occurrence: CN)
  Receive Date: 20210316
  Receipt Date: 20210316
  Transmission Date: 20210420
  Serious: Yes (Hospitalization)
  Sender: FDA-Public Use
  Company Number: CN-ASTRAZENECA-2021A115285

PATIENT
  Age: 27460 Day
  Sex: Female
  Weight: 50 kg

DRUGS (7)
  1. PLAVIX [Suspect]
     Active Substance: CLOPIDOGREL BISULFATE
     Indication: CORONARY ARTERY DISEASE
     Route: 048
     Dates: start: 20210216, end: 20210221
  2. PLAVIX [Suspect]
     Active Substance: CLOPIDOGREL BISULFATE
     Indication: ANTIPLATELET THERAPY
     Route: 048
     Dates: start: 20210216, end: 20210221
  3. TICAGRELOR. [Suspect]
     Active Substance: TICAGRELOR
     Indication: CORONARY ARTERY DISEASE
     Route: 048
     Dates: start: 20210202, end: 20210216
  4. DIHYDROXYALUMINUM AMINOACETATE HEAVY MAGNESIUM CARBONATE AND ASPIRIN [Suspect]
     Active Substance: ASPIRIN\DIHYDROXYALUMINUM AMINOACETATE\MAGNESIUM CARBONATE
     Indication: ANTIPLATELET THERAPY
     Route: 048
     Dates: start: 20210202, end: 20210216
  5. OMEPRAZOLE. [Concomitant]
     Active Substance: OMEPRAZOLE
     Indication: ACIDOSIS
     Route: 042
  6. TICAGRELOR. [Suspect]
     Active Substance: TICAGRELOR
     Indication: ANTIPLATELET THERAPY
     Route: 048
     Dates: start: 20210202, end: 20210216
  7. DIHYDROXYALUMINUM AMINOACETATE HEAVY MAGNESIUM CARBONATE AND ASPIRIN [Suspect]
     Active Substance: ASPIRIN\DIHYDROXYALUMINUM AMINOACETATE\MAGNESIUM CARBONATE
     Indication: CORONARY ARTERY DISEASE
     Route: 048
     Dates: start: 20210202, end: 20210216

REACTIONS (4)
  - Anaemia [Recovering/Resolving]
  - Asthenia [Recovering/Resolving]
  - Gait disturbance [Recovering/Resolving]
  - Upper gastrointestinal haemorrhage [Recovering/Resolving]

NARRATIVE: CASE EVENT DATE: 20210216
